FAERS Safety Report 4534843-0 (Version None)
Quarter: 2004Q4

REPORT INFORMATION
  Report Type: 
  Country: None (occurrence: None)
  Receive Date: 20041222
  Receipt Date: 20040427
  Transmission Date: 20050328
  Serious: No
  Sender: FDA-Public Use
  Company Number: US-BRISTOL-MYERS SQUIBB COMPANY-12573523

PATIENT
  Age: 50 Year
  Sex: Female
  Weight: 100 kg

DRUGS (6)
  1. PRAVACHOL [Suspect]
     Indication: BLOOD CHOLESTEROL INCREASED
     Route: 048
  2. LOTENSIN [Concomitant]
  3. DYAZIDE [Concomitant]
  4. NAPROXEN [Concomitant]
  5. CLARITIN [Concomitant]
  6. ALLEGRA [Concomitant]

REACTIONS (1)
  - SLEEP DISORDER [None]
